FAERS Safety Report 4341411-2 (Version None)
Quarter: 2004Q2

REPORT INFORMATION
  Report Type: 
  Country: None (occurrence: None)
  Receive Date: 20040414
  Receipt Date: 20040331
  Transmission Date: 20050107
  Serious: Yes (Life-Threatening)
  Sender: FDA-Public Use
  Company Number: FLUV00304000108

PATIENT
  Age: 81 Year
  Sex: Female
  Weight: 40 kg

DRUGS (6)
  1. LUVOX [Suspect]
     Indication: DEPRESSION
     Dosage: 50 MG DAILY PO
     Route: 048
     Dates: start: 20031118, end: 20031231
  2. ASPENON (APRINDINE HYDROCHLORIDE) [Suspect]
     Indication: VENTRICULAR EXTRASYSTOLES
     Dosage: 40 MG DAILY PO
     Route: 048
     Dates: start: 20030717, end: 20031231
  3. DOGMATIL (SULPIRIDE) [Suspect]
     Indication: DEPRESSION
     Dosage: 150 MG DAILY PO
     Route: 048
     Dates: start: 20031118, end: 20031231
  4. ISOSORBIDE MONONITRATE [Concomitant]
  5. ADALAT DR (NIFEDIPINE) [Concomitant]
  6. MEXITIL (MEXILETING HYDROCHLORIDE) [Concomitant]

REACTIONS (12)
  - ASPARTATE AMINOTRANSFERASE INCREASED [None]
  - BLOOD CREATINE PHOSPHOKINASE INCREASED [None]
  - BLOOD LACTATE DEHYDROGENASE INCREASED [None]
  - CARDIAC ARREST [None]
  - DEPRESSED LEVEL OF CONSCIOUSNESS [None]
  - DRUG INTERACTION [None]
  - DRUG LEVEL INCREASED [None]
  - ELECTROCARDIOGRAM QT PROLONGED [None]
  - FALL [None]
  - SUBARACHNOID HAEMORRHAGE [None]
  - VENTRICULAR FIBRILLATION [None]
  - VENTRICULAR TACHYCARDIA [None]
